FAERS Safety Report 11526454 (Version 1)
Quarter: 2015Q3

REPORT INFORMATION
  Report Type: Spontaneous
  Country: US (occurrence: US)
  Receive Date: 20150903
  Receipt Date: 20150903
  Transmission Date: 20151125
  Serious: No
  Sender: FDA-Public Use
  Company Number: US-ELI_LILLY_AND_COMPANY-US201205001440

PATIENT
  Age: 59 Year
  Sex: Female
  Weight: 11.34 kg

DRUGS (3)
  1. CYMBALTA [Suspect]
     Active Substance: DULOXETINE HYDROCHLORIDE
     Indication: SYSTEMIC LUPUS ERYTHEMATOSUS
     Dosage: 40 MG, QD
     Route: 048
     Dates: start: 201111
  2. CYMBALTA [Suspect]
     Active Substance: DULOXETINE HYDROCHLORIDE
     Indication: DEPRESSION
     Dosage: 60 MG, QD
     Route: 048
  3. CYMBALTA [Suspect]
     Active Substance: DULOXETINE HYDROCHLORIDE
     Dosage: 90 MG, QD
     Route: 048

REACTIONS (10)
  - Off label use [Not Recovered/Not Resolved]
  - Tooth repair [Unknown]
  - Drug effect decreased [Unknown]
  - Feeling abnormal [Unknown]
  - Stress [Unknown]
  - Diarrhoea [Not Recovered/Not Resolved]
  - Neck pain [Unknown]
  - Headache [Recovered/Resolved]
  - Back pain [Unknown]
  - Drug dose omission [Unknown]

NARRATIVE: CASE EVENT DATE: 20120410
